FAERS Safety Report 7058327-3 (Version None)
Quarter: 2010Q4

REPORT INFORMATION
  Report Type: 
  Country: None (occurrence: None)
  Receive Date: 20101022
  Receipt Date: 20101015
  Transmission Date: 20110411
  Serious: No
  Sender: FDA-Public Use
  Company Number: US-PFIZER INC-2010132133

PATIENT
  Sex: Male
  Weight: 81.633 kg

DRUGS (1)
  1. ZOLOFT [Suspect]
     Indication: IRRITABLE BOWEL SYNDROME
     Dosage: 50 MG, 1X/DAY
     Route: 048
     Dates: start: 19950101

REACTIONS (2)
  - INSOMNIA [None]
  - STRESS [None]
